FAERS Safety Report 10780711 (Version 1)
Quarter: 2015Q1

REPORT INFORMATION
  Report Type: Spontaneous
  Country: US (occurrence: US)
  Receive Date: 20150210
  Receipt Date: 20150210
  Transmission Date: 20150721
  Serious: No
  Sender: FDA-Public Use
  Company Number: US-GLAXOSMITHKLINE-A1055157A

PATIENT

DRUGS (6)
  1. CYPROHEPTADINE. [Concomitant]
     Active Substance: CYPROHEPTADINE
  2. EQUATE NICOTINE [Suspect]
     Active Substance: NICOTINE
     Dates: start: 20140101, end: 20140101
  3. CLONAZEPAM. [Concomitant]
     Active Substance: CLONAZEPAM
  4. PROAIR HFA [Concomitant]
     Active Substance: ALBUTEROL SULFATE
     Route: 055
  5. CITALOPRAM [Concomitant]
     Active Substance: CITALOPRAM HYDROBROMIDE
  6. EQUATE NICOTINE [Suspect]
     Active Substance: NICOTINE
     Indication: SMOKING CESSATION THERAPY
     Route: 062
     Dates: start: 20140101, end: 20140101

REACTIONS (1)
  - Application site erythema [Not Recovered/Not Resolved]

NARRATIVE: CASE EVENT DATE: 20140101
